FAERS Safety Report 7826607-7 (Version None)
Quarter: 2011Q4

REPORT INFORMATION
  Report Type: 
  Country: None (occurrence: None)
  Receive Date: 20111020
  Receipt Date: 20111011
  Transmission Date: 20120403
  Serious: Yes (Other)
  Sender: FDA-Public Use
  Company Number: HR-PAR PHARMACEUTICAL, INC-2011SCPR003289

PATIENT

DRUGS (1)
  1. HYDROXYUREA [Suspect]
     Indication: POLYCYTHAEMIA VERA
     Dosage: UNK, UNKNOWN
     Route: 065
     Dates: start: 19900101

REACTIONS (10)
  - SKIN HYPERPIGMENTATION [None]
  - ACTINIC KERATOSIS [None]
  - ICHTHYOSIS ACQUIRED [None]
  - MOUTH ULCERATION [None]
  - SKIN ULCER [None]
  - NAIL PIGMENTATION [None]
  - SKIN ATROPHY [None]
  - SQUAMOUS CELL CARCINOMA [None]
  - BASAL CELL CARCINOMA [None]
  - HUMAN PAPILLOMA VIRUS TEST POSITIVE [None]
